FAERS Safety Report 7353940-8 (Version None)
Quarter: 2011Q1

REPORT INFORMATION
  Report Type: 
  Country: None (occurrence: None)
  Receive Date: 20110315
  Receipt Date: 20110313
  Transmission Date: 20110831
  Serious: Yes (Death)
  Sender: FDA-Public Use
  Company Number: JP-ABBOTT-11P-087-0709172-00

PATIENT
  Age: 90 Year

DRUGS (1)
  1. VASOMET [Suspect]
     Indication: PRODUCT USED FOR UNKNOWN INDICATION
     Dosage: 2 MG DAILY
     Route: 048

REACTIONS (3)
  - WRONG DRUG ADMINISTERED [None]
  - CEREBRAL INFARCTION [None]
  - FALL [None]
